FAERS Safety Report 7030995-1 (Version None)
Quarter: 2010Q4

REPORT INFORMATION
  Report Type: 
  Country: None (occurrence: None)
  Receive Date: 20101006
  Receipt Date: 20100604
  Transmission Date: 20110411
  Serious: No
  Sender: FDA-Public Use
  Company Number: US-BRISTOL-MYERS SQUIBB COMPANY-15110414

PATIENT
  Age: 71 Year
  Sex: Female
  Weight: 57 kg

DRUGS (2)
  1. KENALOG-40 [Suspect]
     Indication: SKIN DISORDER
     Dosage: 2 INJ(ONE ON END OF OCT09; ONE ON MIDDLE OF FEB10).
     Dates: start: 20091001
  2. KENALOG-40 [Suspect]
     Indication: ARTHRITIS
     Dosage: 2 INJ(ONE ON END OF OCT09; ONE ON MIDDLE OF FEB10).
     Dates: start: 20091001

REACTIONS (10)
  - ALOPECIA [None]
  - ANGER [None]
  - IMPAIRED HEALING [None]
  - MUSCLE ATROPHY [None]
  - MUSCULAR WEAKNESS [None]
  - PAIN [None]
  - PIGMENTATION DISORDER [None]
  - SKIN ATROPHY [None]
  - SKIN EXFOLIATION [None]
  - SKIN HAEMORRHAGE [None]
